FAERS Safety Report 10705080 (Version 1)
Quarter: 2015Q1

REPORT INFORMATION
  Report Type: Spontaneous
  Country: US (occurrence: None)
  Receive Date: 20150109
  Receipt Date: 20150109
  Transmission Date: 20150721
  Serious: No
  Sender: FDA-Public Use
  Company Number: None

PATIENT
  Age: 40 Year
  Sex: Female

DRUGS (1)
  1. HUMIRA [Suspect]
     Active Substance: ADALIMUMAB
     Indication: RHEUMATOID ARTHRITIS
     Route: 058

REACTIONS (6)
  - Rash erythematous [None]
  - Skin exfoliation [None]
  - Dry skin [None]
  - Flushing [None]
  - Drug dose omission [None]
  - Feeling hot [None]

NARRATIVE: CASE EVENT DATE: 20140418
